FAERS Safety Report 23440768 (Version 2)
Quarter: 2024Q1

REPORT INFORMATION
  Report Type: Spontaneous
  Country: DK (occurrence: DK)
  Receive Date: 20240125
  Receipt Date: 20240206
  Transmission Date: 20240409
  Serious: Yes (Other)
  Sender: FDA-Public Use
  Company Number: None

PATIENT
  Age: 34 Year
  Sex: Male
  Weight: 137 kg

DRUGS (2)
  1. SAXENDA [Suspect]
     Active Substance: LIRAGLUTIDE
     Indication: Overweight
     Dosage: 3 MG, QD
     Dates: start: 20221223, end: 202302
  2. FEXOFENADINE [Concomitant]
     Active Substance: FEXOFENADINE HYDROCHLORIDE
     Indication: Urticaria
     Dosage: UNK
     Dates: start: 20170101

REACTIONS (8)
  - Depressive symptom [Recovered/Resolved]
  - Self esteem decreased [Recovered/Resolved]
  - Hallucination [Recovered/Resolved]
  - Mood swings [Recovered/Resolved]
  - Fear of death [Recovered/Resolved]
  - Crying [Recovered/Resolved]
  - Self-injurious ideation [Recovered/Resolved]
  - Insomnia [Recovered/Resolved]

NARRATIVE: CASE EVENT DATE: 20221201
